FAERS Safety Report 15907673 (Version 1)
Quarter: 2019Q1

REPORT INFORMATION
  Report Type: Spontaneous
  Country: PK (occurrence: PK)
  Receive Date: 20190204
  Receipt Date: 20190204
  Transmission Date: 20190417
  Serious: Yes (Other)
  Sender: FDA-Public Use
  Company Number: PK-SA-2019SA025303

PATIENT
  Age: 72 Year
  Sex: Female

DRUGS (3)
  1. CRAVIT [Concomitant]
     Active Substance: LEVOFLOXACIN
     Indication: ANTIBIOTIC THERAPY
     Dosage: UNK UNK, UNK
     Route: 048
     Dates: start: 20190110
  2. LANTUS [Suspect]
     Active Substance: INSULIN GLARGINE
     Indication: DIABETES MELLITUS
     Dosage: 28 IU, HS
     Route: 058
     Dates: start: 20170629
  3. ZADITOR [KETOTIFEN] [Concomitant]
     Indication: ANTIALLERGIC THERAPY
     Dosage: UNK UNK, UNK
     Route: 048
     Dates: start: 20190110

REACTIONS (4)
  - Lower respiratory tract infection [Not Recovered/Not Resolved]
  - Disease recurrence [Not Recovered/Not Resolved]
  - Hyperglycaemia [Not Recovered/Not Resolved]
  - Urinary tract infection [Not Recovered/Not Resolved]

NARRATIVE: CASE EVENT DATE: 2018
